FAERS Safety Report 22841449 (Version 2)
Quarter: 2023Q4

REPORT INFORMATION
  Report Type: Spontaneous
  Country: US (occurrence: US)
  Receive Date: 20230821
  Receipt Date: 20231003
  Transmission Date: 20240109
  Serious: No
  Sender: FDA-Public Use
  Company Number: US-BRISTOL-MYERS SQUIBB COMPANY-2023-115813

PATIENT
  Age: 84 Year
  Sex: Male
  Weight: 73.48 kg

DRUGS (1)
  1. REVLIMID [Suspect]
     Active Substance: LENALIDOMIDE
     Indication: Plasma cell myeloma
     Dosage: 2WKSON,1OFF
     Route: 048
     Dates: start: 20230616

REACTIONS (3)
  - White blood cell count abnormal [Recovered/Resolved]
  - Off label use [Unknown]
  - Dizziness [Unknown]
